FAERS Safety Report 5714559-5 (Version None)
Quarter: 2008Q2

REPORT INFORMATION
  Report Type: 
  Country: None (occurrence: None)
  Receive Date: 20080421
  Receipt Date: 20080410
  Transmission Date: 20081010
  Serious: Yes (Death)
  Sender: FDA-Public Use
  Company Number: 000368

PATIENT
  Age: 87 Year
  Sex: Male

DRUGS (8)
  1. PLETAL [Suspect]
     Indication: ARTERIOSCLEROSIS OBLITERANS
     Dosage: 100 MG, BID
     Route: 048
     Dates: start: 20071210, end: 20080314
  2. CANDESARTAN CILEXETIL [Concomitant]
  3. BASSSAMIN (ASPIRIN DIALUMINATE) [Concomitant]
  4. BRONCHOLIN (MABUTEROL HYDROCHLORIDE) [Concomitant]
  5. FUMARUFEN (KETOTIFEN FUMARATE) [Concomitant]
  6. PREDNISOLONE [Concomitant]
  7. DISOPYRAMIDE [Concomitant]
  8. MELBURAL (ETHYL ICOSAPENTATE) [Concomitant]

REACTIONS (1)
  - CEREBRAL HAEMORRHAGE [None]
